FAERS Safety Report 7940552-8 (Version None)
Quarter: 2011Q4

REPORT INFORMATION
  Report Type: 
  Country: None (occurrence: None)
  Receive Date: 20111108
  Receipt Date: 20100929
  Transmission Date: 20120403
  Serious: Yes (Disabling, Other)
  Sender: FDA-Public Use
  Company Number: PHHY2010US64730

PATIENT
  Age: 74 Year
  Sex: Female

DRUGS (7)
  1. DECADRON [Concomitant]
  2. REVLIMID [Suspect]
     Indication: MULTIPLE MYELOMA
     Dosage: 5 MG, QD, ORAL ; 5 MG, BID, ORAL ; 5 MG, BID, ORAL
     Route: 048
     Dates: start: 20080701
  3. REVLIMID [Suspect]
     Indication: MULTIPLE MYELOMA
     Dosage: 5 MG, QD, ORAL ; 5 MG, BID, ORAL ; 5 MG, BID, ORAL
     Route: 048
     Dates: start: 20060309, end: 20080101
  4. REVLIMID [Suspect]
     Indication: MULTIPLE MYELOMA
     Dosage: 5 MG, QD, ORAL ; 5 MG, BID, ORAL ; 5 MG, BID, ORAL
     Route: 048
     Dates: start: 20081101
  5. CHEMOTHERAPEUTICS NOS (NO INGREDIENTS/SUBSTANCES) [Concomitant]
  6. ZOMETA [Suspect]
  7. CYANOCOBALAMIN [Concomitant]

REACTIONS (6)
  - TOOTH ABSCESS [None]
  - DENTAL CARIES [None]
  - TOOTH EXTRACTION [None]
  - BONE ABSCESS [None]
  - GINGIVAL INFECTION [None]
  - OSTEONECROSIS OF JAW [None]
